FAERS Safety Report 17168435 (Version 1)
Quarter: 2019Q4

REPORT INFORMATION
  Report Type: Spontaneous
  Country: US (occurrence: US)
  Receive Date: 20191218
  Receipt Date: 20191218
  Transmission Date: 20200122
  Serious: No
  Sender: FDA-Public Use
  Company Number: US-KYOWAKIRIN-2018BKK009074

PATIENT

DRUGS (1)
  1. SANCUSO [Suspect]
     Active Substance: GRANISETRON
     Indication: PROPHYLAXIS OF NAUSEA AND VOMITING
     Dosage: UNKNOWN
     Route: 061
     Dates: start: 20181016

REACTIONS (5)
  - Application site pruritus [Unknown]
  - Application site pain [Unknown]
  - Application site rash [Unknown]
  - Application site bruise [Unknown]
  - Application site erythema [Unknown]

NARRATIVE: CASE EVENT DATE: 201810
